FAERS Safety Report 9772206 (Version 2)
Quarter: 2013Q4

REPORT INFORMATION
  Report Type: Report from Study
  Country: DE (occurrence: DE)
  Receive Date: 20131219
  Receipt Date: 20131219
  Transmission Date: 20140711
  Serious: Yes (Death)
  Sender: FDA-Public Use
  Company Number: DE-BEH-2013038279

PATIENT
  Age: 51 Year
  Sex: Female
  Weight: 48 kg

DRUGS (6)
  1. PRIVIGEN [Suspect]
     Dosage: INFUSIONS RATE:MIN 0.24 MAX.1.6 ML/MIN.
     Route: 042
     Dates: start: 20111230, end: 20111230
  2. PRIVIGEN [Suspect]
     Indication: T-CELL LYMPHOMA
     Dosage: INFUSIONS RATE:MIN 0.24 MAX.3.2 ML/MIN.
     Route: 042
     Dates: start: 20120106, end: 20120106
  3. CORTICOID [Concomitant]
  4. ANTIMYCOTICUM [Concomitant]
  5. VIROSTATIKUM [Concomitant]
  6. ANTIBIOTIKUM [Concomitant]

REACTIONS (3)
  - Septic shock [Fatal]
  - Neutropenic colitis [Recovering/Resolving]
  - Pseudomonas infection [Recovering/Resolving]
